FAERS Safety Report 8221869-9 (Version None)
Quarter: 2012Q1

REPORT INFORMATION
  Report Type: 
  Country: None (occurrence: None)
  Receive Date: 20120320
  Receipt Date: 20120313
  Transmission Date: 20120608
  Serious: Yes (Other)
  Sender: FDA-Public Use
  Company Number: US-BAYER-2011-117449

PATIENT
  Age: 55 Year
  Sex: Male
  Weight: 62.585 kg

DRUGS (3)
  1. NEXAVAR [Suspect]
     Indication: HEPATIC NEOPLASM MALIGNANT
     Dosage: 400 MG, BID
     Route: 048
     Dates: start: 20111118, end: 20110101
  2. NEXAVAR [Suspect]
     Dosage: 400 MG, BID
     Route: 048
     Dates: start: 20111201
  3. NEXAVAR [Suspect]
     Dosage: 400 MG, BID
     Route: 048

REACTIONS (8)
  - DYSPNOEA [None]
  - NAUSEA [None]
  - ALOPECIA [None]
  - GINGIVAL SWELLING [None]
  - SKIN EXFOLIATION [None]
  - DRY SKIN [None]
  - RASH MACULAR [None]
  - INSOMNIA [None]
